FAERS Safety Report 24934755 (Version 1)
Quarter: 2025Q1

REPORT INFORMATION
  Report Type: Spontaneous
  Country: GB (occurrence: GB)
  Receive Date: 20250206
  Receipt Date: 20250206
  Transmission Date: 20250409
  Serious: Yes (Disabling, Other)
  Sender: TEVA
  Company Number: GB-MHRA-WEBRADR-202501290956156900-NMWZD

PATIENT
  Age: 52 Year
  Sex: Female
  Weight: 55 kg

DRUGS (1)
  1. BISOPROLOL [Suspect]
     Active Substance: BISOPROLOL
     Indication: Tachycardia
     Route: 048
     Dates: start: 20220712, end: 20240706

REACTIONS (7)
  - Bradycardia [Recovered/Resolved with Sequelae]
  - Insomnia [Recovering/Resolving]
  - Nocturia [Not Recovered/Not Resolved]
  - Depression [Recovered/Resolved]
  - Hallucination [Recovered/Resolved]
  - Suicidal ideation [Recovered/Resolved]
  - Hypotension [Recovered/Resolved with Sequelae]

NARRATIVE: CASE EVENT DATE: 20230309
